FAERS Safety Report 13909144 (Version 3)
Quarter: 2017Q3

REPORT INFORMATION
  Report Type: Spontaneous
  Country: JP (occurrence: JP)
  Receive Date: 20170828
  Receipt Date: 20170924
  Transmission Date: 20171127
  Serious: Yes (Other)
  Sender: FDA-Public Use
  Company Number: JP-009507513-1706JPN001475J

PATIENT
  Age: 36 Year
  Sex: Male

DRUGS (6)
  1. BELSOMRA [Suspect]
     Active Substance: SUVOREXANT
     Indication: INSOMNIA
     Dosage: 15 MG, QD
     Route: 048
     Dates: start: 20170221, end: 20170612
  2. PAXIL [Concomitant]
     Active Substance: PAROXETINE HYDROCHLORIDE
     Indication: DEPRESSION
     Dosage: UNK
     Route: 048
  3. AMOBAN [Concomitant]
     Active Substance: ZOPICLONE
     Dosage: 1.875 MG, UNK
     Route: 048
  4. ROZEREM [Concomitant]
     Active Substance: RAMELTEON
     Dosage: UNK
     Route: 048
  5. BELSOMRA [Suspect]
     Active Substance: SUVOREXANT
     Dosage: 7.5 MG, QD
     Route: 048
     Dates: start: 20170613, end: 20170710
  6. BELSOMRA [Suspect]
     Active Substance: SUVOREXANT
     Indication: INSOMNIA
     Dosage: 20 MG, QD
     Route: 048
     Dates: start: 20170124, end: 20170220

REACTIONS (3)
  - Somnolence [Recovered/Resolved]
  - Underdose [Unknown]
  - Rapid eye movement sleep behaviour disorder [Recovered/Resolved]

NARRATIVE: CASE EVENT DATE: 20170125
